FAERS Safety Report 7364996-0 (Version None)
Quarter: 2011Q1

REPORT INFORMATION
  Report Type: 
  Country: None (occurrence: None)
  Receive Date: 20110311
  Receipt Date: 20110224
  Transmission Date: 20110831
  Serious: Yes (Life-Threatening, Other)
  Sender: FDA-Public Use
  Company Number: AUR-APL-2011-00672

PATIENT
  Age: 59 Year
  Sex: Female
  Weight: 53.33 kg

DRUGS (8)
  1. METOPROLOL [Suspect]
  2. LEVOTHYROXINE [Suspect]
  3. ZANTAC [Suspect]
  4. LIPITOR [Suspect]
     Indication: BLOOD CHOLESTEROL ABNORMAL
  5. METFORMIN HCL [Suspect]
     Indication: BLOOD GLUCOSE NORMAL
  6. AMITRIPTYLINE [Suspect]
  7. ACCUPRIL [Suspect]
     Dosage: ORAL
     Route: 048
  8. ACETYLSALICYLIC ACID SRT [Suspect]

REACTIONS (1)
  - CORONARY ARTERY OCCLUSION [None]
